FAERS Safety Report 6899245-0 (Version None)
Quarter: 2010Q3

REPORT INFORMATION
  Report Type: 
  Country: None (occurrence: None)
  Receive Date: 20100802
  Receipt Date: 20080311
  Transmission Date: 20110219
  Serious: Yes (Other)
  Sender: FDA-Public Use
  Company Number: US-PFIZER INC-2007037152

PATIENT
  Sex: Female
  Weight: 52.2 kg

DRUGS (6)
  1. LYRICA [Suspect]
     Indication: FIBROMYALGIA
     Dates: start: 20070201, end: 20070301
  2. ALPRAZOLAM [Concomitant]
  3. GLIPIZIDE [Concomitant]
  4. LISINOPRIL [Concomitant]
     Indication: PROTEINURIA
  5. MAGNESIUM [Concomitant]
  6. FENTANYL [Concomitant]

REACTIONS (11)
  - BALANCE DISORDER [None]
  - CONSTIPATION [None]
  - DERMATITIS INFECTED [None]
  - DISTURBANCE IN ATTENTION [None]
  - DIZZINESS [None]
  - DRUG HYPERSENSITIVITY [None]
  - FATIGUE [None]
  - GENITAL RASH [None]
  - IRRITABILITY [None]
  - RASH GENERALISED [None]
  - WEIGHT DECREASED [None]
